FAERS Safety Report 4711926-3 (Version None)
Quarter: 2005Q3

REPORT INFORMATION
  Report Type: 
  Country: None (occurrence: None)
  Receive Date: 20050712
  Receipt Date: 20050615
  Transmission Date: 20060218
  Serious: Yes (Hospitalization)
  Sender: FDA-Public Use
  Company Number: PHHO2005DE09470

PATIENT
  Age: 52 Year
  Sex: Female
  Weight: 69 kg

DRUGS (3)
  1. CERTICAN VS MMF [Suspect]
     Indication: LUNG TRANSPLANT
     Dosage: 0.75 MG/DAY
     Route: 048
     Dates: start: 20050419
  2. NEORAL [Suspect]
     Dosage: 50 MG, BID
     Route: 048
     Dates: start: 20050322
  3. DECORTIN-H [Suspect]
     Indication: RENAL TRANSPLANT
     Dosage: 10 MG/DAY
     Route: 048
     Dates: start: 20050322

REACTIONS (6)
  - GASTROENTERITIS [None]
  - HYPERKALAEMIA [None]
  - IMMUNOSUPPRESSANT DRUG LEVEL INCREASED [None]
  - NAUSEA [None]
  - URINARY RETENTION [None]
  - VOMITING [None]
